FAERS Safety Report 10392003 (Version 1)
Quarter: 2014Q3

REPORT INFORMATION
  Report Type: Spontaneous
  Country: GB (occurrence: GB)
  Receive Date: 20140819
  Receipt Date: 20140819
  Transmission Date: 20150326
  Serious: Yes (Disabling, Other)
  Sender: FDA-Public Use
  Company Number: PHHY2014GB097834

PATIENT
  Age: 43 Year
  Sex: Female

DRUGS (4)
  1. ZOPICLONE [Concomitant]
     Active Substance: ZOPICLONE
  2. TOPIRAMATE. [Suspect]
     Active Substance: TOPIRAMATE
     Indication: MIGRAINE
     Dosage: 75 MG, UNK
     Route: 048
     Dates: start: 20140511, end: 20140623
  3. IBUPROFEN. [Concomitant]
     Active Substance: IBUPROFEN
  4. NORTRIPTYLINE [Concomitant]
     Active Substance: NORTRIPTYLINE
     Dates: start: 20140724

REACTIONS (13)
  - Respiratory disorder [Recovered/Resolved]
  - Tension [Recovering/Resolving]
  - Suicidal ideation [Recovered/Resolved]
  - Cough [Recovered/Resolved with Sequelae]
  - Migraine [Recovered/Resolved]
  - Paraesthesia [Recovered/Resolved]
  - Stress [Not Recovered/Not Resolved]
  - Mouth ulceration [Recovered/Resolved]
  - Insomnia [Not Recovered/Not Resolved]
  - Anxiety [Recovering/Resolving]
  - Mental impairment [Recovered/Resolved]
  - Palpitations [Not Recovered/Not Resolved]
  - Hyperacusis [Not Recovered/Not Resolved]

NARRATIVE: CASE EVENT DATE: 20140512
